FAERS Safety Report 4393175-4 (Version None)
Quarter: 2004Q3

REPORT INFORMATION
  Report Type: 
  Country: None (occurrence: None)
  Receive Date: 20040702
  Receipt Date: 20040413
  Transmission Date: 20050211
  Serious: Yes (Other)
  Sender: FDA-Public Use
  Company Number: 2004UW07370

PATIENT
  Age: 69 Year
  Sex: Female
  Weight: 70.7611 kg

DRUGS (4)
  1. CRESTOR [Suspect]
     Indication: BLOOD CHOLESTEROL INCREASED
     Dosage: 10 MG PO
     Route: 048
     Dates: start: 20040210
  2. ASPIRIN [Concomitant]
  3. MULTI-VITAMINS [Concomitant]
  4. TEQUIN [Concomitant]

REACTIONS (5)
  - APHONIA [None]
  - BLISTER [None]
  - EYE HAEMORRHAGE [None]
  - PHARYNGOLARYNGEAL PAIN [None]
  - RASH GENERALISED [None]
